FAERS Safety Report 4857628-4 (Version None)
Quarter: 2005Q4

REPORT INFORMATION
  Report Type: 
  Country: None (occurrence: None)
  Receive Date: 20051219
  Receipt Date: 20050526
  Transmission Date: 20060501
  Serious: No
  Sender: FDA-Public Use
  Company Number: US-GLAXOSMITHKLINE-A0560527A

PATIENT
  Sex: Female

DRUGS (1)
  1. AMERICAN FARE NTS, 14MG STEP 2 [Suspect]
     Dates: start: 20050523

REACTIONS (5)
  - EUPHORIC MOOD [None]
  - ILL-DEFINED DISORDER [None]
  - IRRITABILITY [None]
  - NAUSEA [None]
  - NICOTINE DEPENDENCE [None]
